FAERS Safety Report 24310685 (Version 1)
Quarter: 2024Q3

REPORT INFORMATION
  Report Type: Report from Study
  Country: CA (occurrence: CA)
  Receive Date: 20240912
  Receipt Date: 20240912
  Transmission Date: 20241016
  Serious: Yes (Other)
  Sender: NOVARTIS
  Company Number: CA-002147023-NVSC2024CA169344

PATIENT
  Age: 80 Year
  Sex: Female

DRUGS (2)
  1. LEQVIO [Suspect]
     Active Substance: INCLISIRAN SODIUM
     Indication: Hypercholesterolaemia
     Dosage: 284 MG, OTHER (BASELINE, 3 MONTHS, 6 MONTHS THEREAFTER)
     Route: 058
     Dates: start: 20240816
  2. LEQVIO [Suspect]
     Active Substance: INCLISIRAN SODIUM
     Indication: Type IIa hyperlipidaemia

REACTIONS (4)
  - Pneumonia [Recovering/Resolving]
  - Cough [Recovering/Resolving]
  - Headache [Recovering/Resolving]
  - Nasal congestion [Unknown]

NARRATIVE: CASE EVENT DATE: 20240817
